FAERS Safety Report 7226943-1 (Version None)
Quarter: 2011Q1

REPORT INFORMATION
  Report Type: 
  Country: None (occurrence: None)
  Receive Date: 20110114
  Receipt Date: 20100302
  Transmission Date: 20110831
  Serious: No
  Sender: FDA-Public Use
  Company Number: US-PFIZER INC-2010027355

PATIENT
  Sex: Female

DRUGS (1)
  1. SOMAVERT [Suspect]
     Dosage: UNK

REACTIONS (2)
  - DECREASED APPETITE [None]
  - DIARRHOEA [None]
